FAERS Safety Report 4482294-X (Version None)
Quarter: 2004Q4

REPORT INFORMATION
  Report Type: 
  Country: None (occurrence: None)
  Receive Date: 20041020
  Receipt Date: 20041007
  Transmission Date: 20050328
  Serious: Yes (Hospitalization)
  Sender: FDA-Public Use
  Company Number: 2004AP03909

PATIENT
  Age: 69 Year
  Sex: Male

DRUGS (1)
  1. ZOLADEX [Suspect]
     Indication: PROSTATE CANCER
     Dosage: 10.8 MG Q3MO SQ
     Dates: start: 20040707, end: 20040707

REACTIONS (7)
  - ALANINE AMINOTRANSFERASE INCREASED [None]
  - ASPARTATE AMINOTRANSFERASE INCREASED [None]
  - BILE DUCT CANCER [None]
  - BILE DUCT STENOSIS [None]
  - BILIARY DILATATION [None]
  - HEPATIC FUNCTION ABNORMAL [None]
  - INSOMNIA [None]
